FAERS Safety Report 8695883 (Version 3)
Quarter: 2012Q4

REPORT INFORMATION
  Report Type: 
  Country: GB (occurrence: GB)
  Receive Date: 20120801
  Receipt Date: 20120913
  Transmission Date: 20130627
  Serious: Yes (Hospitalization, Other)
  Sender: FDA-Public Use
  Company Number: GB-MYLANLABS-2012S1009668

PATIENT
  Age: 63 Year
  Sex: Male

DRUGS (2)
  1. ITRACONAZOLE [Suspect]
     Indication: BRONCHOPULMONARY ASPERGILLOSIS
     Route: 048
     Dates: start: 20120306, end: 20120412
  2. SIMVASTATIN [Suspect]
     Indication: PRODUCT USED FOR UNKNOWN INDICATION

REACTIONS (10)
  - Drug interaction [Recovered/Resolved]
  - Asthenia [Recovered/Resolved]
  - Blood creatine phosphokinase increased [Recovered/Resolved]
  - Alanine aminotransferase increased [Recovered/Resolved]
  - Liver function test abnormal [Recovered/Resolved]
  - Mobility decreased [Recovered/Resolved with Sequelae]
  - Myositis [Recovered/Resolved with Sequelae]
  - Myopathy [Recovered/Resolved]
  - Oedema peripheral [Recovered/Resolved with Sequelae]
  - Cellulitis [Recovered/Resolved with Sequelae]
